FAERS Safety Report 7318924-4 (Version None)
Quarter: 2011Q1

REPORT INFORMATION
  Report Type: 
  Country: None (occurrence: None)
  Receive Date: 20110228
  Receipt Date: 20110215
  Transmission Date: 20110831
  Serious: Yes (Hospitalization)
  Sender: FDA-Public Use
  Company Number: FR-ELI_LILLY_AND_COMPANY-FR201101006179

PATIENT
  Age: 52 Year
  Sex: Female
  Weight: 73 kg

DRUGS (2)
  1. CYMBALTA [Suspect]
     Indication: DEPRESSION
     Dosage: 60 MG, 2/D
     Route: 048
     Dates: start: 20080101
  2. AVLOCARDYL [Concomitant]
     Indication: HYPERTENSION
     Dosage: 0.4 G, DAILY (1/D)

REACTIONS (4)
  - MOOD ALTERED [None]
  - ASTHENIA [None]
  - BLOOD PRESSURE FLUCTUATION [None]
  - AFFECTIVE DISORDER [None]
